FAERS Safety Report 4335287-7 (Version None)
Quarter: 2004Q2

REPORT INFORMATION
  Report Type: 
  Country: None (occurrence: None)
  Receive Date: 20040409
  Receipt Date: 20031203
  Transmission Date: 20050107
  Serious: Yes (Hospitalization)
  Sender: FDA-Public Use
  Company Number: 200320227US

PATIENT
  Sex: Male
  Weight: 75 kg

DRUGS (2)
  1. TAXOTERE [Suspect]
     Indication: PROSTATE CANCER METASTATIC
     Route: 042
  2. CORTISONE [Concomitant]

REACTIONS (10)
  - ARTHRALGIA [None]
  - DERMATITIS EXFOLIATIVE [None]
  - DRUG INEFFECTIVE [None]
  - ERYTHEMA [None]
  - EXTRAVASATION [None]
  - FEELING COLD [None]
  - MEDICATION ERROR [None]
  - OEDEMA PERIPHERAL [None]
  - PAIN IN EXTREMITY [None]
  - SCAN ABDOMEN ABNORMAL [None]
